FAERS Safety Report 12168768 (Version 1)
Quarter: 2016Q1

REPORT INFORMATION
  Report Type: Spontaneous
  Country: US (occurrence: US)
  Receive Date: 20160310
  Receipt Date: 20160310
  Transmission Date: 20160526
  Serious: No
  Sender: FDA-Public Use
  Company Number: US-BAYER-2016-039553

PATIENT
  Age: 86 Year
  Sex: Male
  Weight: 61.22 kg

DRUGS (13)
  1. PAROXETIN [Concomitant]
     Active Substance: PAROXETINE HYDROCHLORIDE
  2. ALLOPURINOL. [Concomitant]
     Active Substance: ALLOPURINOL
  3. DOXAZOSIN [Concomitant]
     Active Substance: DOXAZOSIN\DOXAZOSIN MESYLATE
  4. LOSARTAN. [Concomitant]
     Active Substance: LOSARTAN
  5. HYGROTON [Concomitant]
     Active Substance: CHLORTHALIDONE
     Indication: FAECES HARD
  6. MIRALAX [Suspect]
     Active Substance: POLYETHYLENE GLYCOL 3350
     Indication: GASTROINTESTINAL DISORDER
     Dosage: 0.5 DF, QD
     Route: 048
  7. TRAMADOL. [Concomitant]
     Active Substance: TRAMADOL
  8. AMLODIPIN [Concomitant]
     Active Substance: AMLODIPINE BESYLATE
  9. HYGROTON [Concomitant]
     Active Substance: CHLORTHALIDONE
     Indication: GASTROINTESTINAL DISORDER
  10. CLONAZEPAM. [Concomitant]
     Active Substance: CLONAZEPAM
  11. FINASTERIDE. [Concomitant]
     Active Substance: FINASTERIDE
  12. OXYMORPHONE [Concomitant]
     Active Substance: OXYMORPHONE
  13. GABAPENTIN. [Concomitant]
     Active Substance: GABAPENTIN

REACTIONS (2)
  - Feeling abnormal [None]
  - Product use issue [None]
